FAERS Safety Report 6181517 (Version 27)
Quarter: 2013Q2

REPORT INFORMATION
  Report Type: Spontaneous
  Country: US (occurrence: US)
  Receive Date: 20061208
  Receipt Date: 20130423
  Transmission Date: 20140414
  Serious: Yes (Hospitalization, Other)
  Sender: FDA-Public Use
  Company Number: PHEH2006US14750

PATIENT
  Age: 50 Year
  Sex: Female
  Weight: 85.26 kg

DRUGS (62)
  1. AREDIA [Suspect]
     Route: 042
     Dates: start: 1999
  2. ZOMETA [Suspect]
     Route: 042
     Dates: end: 2005
  3. HERCEPTIN [Concomitant]
  4. NAVELBINE [Concomitant]
  5. CIPROFLOXACIN [Concomitant]
  6. VITAMIN D [Concomitant]
     Indication: OSTEOPOROSIS
  7. ANTIHISTAMINES [Concomitant]
  8. ALOXI [Concomitant]
  9. KYTRIL [Concomitant]
  10. CALCIUM [Concomitant]
  11. OXYCONTIN [Concomitant]
  12. METHADONE [Concomitant]
  13. FASLODEX [Concomitant]
  14. AMOXICILLIN [Concomitant]
  15. FLEXERIL [Concomitant]
  16. LIDOCAINE [Concomitant]
  17. AUGMENTIN [Concomitant]
  18. CLONAZEPAM [Concomitant]
  19. SEROQUEL [Concomitant]
     Indication: MOOD SWINGS
     Dosage: 50 MG, UNK
  20. OXYCODONE [Concomitant]
  21. EFFEXOR [Concomitant]
     Indication: DEPRESSION
     Dosage: 75 MG, BID
  22. PRILOSEC [Concomitant]
  23. LOVENOX [Concomitant]
  24. B12 [Concomitant]
  25. FOLIC ACID [Concomitant]
  26. REQUIP [Concomitant]
  27. ETODOLAC [Concomitant]
     Dosage: 1 DF, QD
  28. ATIVAN [Concomitant]
     Indication: SLEEP DISORDER
     Dosage: 1 MG, PRN
  29. CHLORHEXIDINE [Concomitant]
  30. TAMOXIFEN [Concomitant]
  31. FEMARA [Concomitant]
  32. TAXOTERE [Concomitant]
  33. ZYPREXA [Concomitant]
     Dosage: 1 DF, UNK
     Route: 048
     Dates: start: 20090225
  34. ADVAIR [Concomitant]
     Dates: start: 20090123
  35. COMPAZINE [Concomitant]
     Dates: start: 20081223
  36. TORADOL [Concomitant]
     Indication: PAIN
  37. TYLENOL [Concomitant]
     Indication: PAIN
  38. LORATADINE [Concomitant]
     Indication: UPPER RESPIRATORY TRACT INFECTION
  39. ALBUTEROL [Concomitant]
     Indication: DYSPNOEA
  40. LORAZEPAM [Concomitant]
     Indication: INSOMNIA
  41. VICODIN [Concomitant]
     Indication: PAIN
  42. NEURONTIN [Concomitant]
     Dosage: 600 MG, BID
  43. AZITHROMYCIN [Concomitant]
     Indication: MUSCLE SPASMS
     Dosage: 1 MG, Q12H
  44. BEXTRA [Concomitant]
     Dosage: 20 MG, QD
  45. XELODA [Concomitant]
  46. COUMADIN [Concomitant]
  47. DOXIL [Concomitant]
  48. GEMCITABINE [Concomitant]
  49. METOCLOPRAMIDE [Concomitant]
  50. PROXETINE [Concomitant]
  51. MORPHINE [Concomitant]
  52. VIOXX [Concomitant]
  53. IRON [Concomitant]
  54. FENTANYL [Concomitant]
  55. LASIX [Concomitant]
  56. PROZAC [Concomitant]
  57. ZOFRAN [Concomitant]
  58. ANASTROZOLE [Concomitant]
     Dosage: 1 MG, UNK
     Route: 048
  59. KAON-CL [Concomitant]
     Dosage: 10 MEQ, UNK
     Route: 048
  60. PROVENTIL [Concomitant]
  61. ROBITUSSIN [Concomitant]
  62. MIGRANAL [Concomitant]

REACTIONS (154)
  - Herpes simplex meningoencephalitis [Unknown]
  - Leukodystrophy [Unknown]
  - Spinal osteoarthritis [Unknown]
  - Osteonecrosis of jaw [Unknown]
  - Pain in jaw [Unknown]
  - General physical health deterioration [Unknown]
  - Pain [Unknown]
  - Anxiety [Unknown]
  - Decreased interest [Unknown]
  - Intervertebral disc degeneration [Unknown]
  - Upper respiratory tract infection [Unknown]
  - Upper respiratory tract congestion [Unknown]
  - Bronchitis [Unknown]
  - Sinusitis [Unknown]
  - Dyspnoea [Unknown]
  - Osteoporosis [Unknown]
  - Dysarthria [Unknown]
  - Blood pressure increased [Unknown]
  - Albumin globulin ratio decreased [Unknown]
  - Blood glucose increased [Unknown]
  - Eosinophil count decreased [Unknown]
  - Globulins increased [Unknown]
  - Haematocrit decreased [Unknown]
  - Haemoglobin decreased [Unknown]
  - Lymphocyte count decreased [Unknown]
  - Monocyte count decreased [Unknown]
  - Neutrophil count increased [Unknown]
  - Red blood cell count decreased [Unknown]
  - White blood cell count increased [Unknown]
  - Abdominal pain [Unknown]
  - Joint injury [Unknown]
  - Oedema peripheral [Unknown]
  - Feeling abnormal [Unknown]
  - Headache [Unknown]
  - Gait disturbance [Unknown]
  - Sleep disorder [Unknown]
  - Mood swings [Unknown]
  - Hiatus hernia [Unknown]
  - Scoliosis [Unknown]
  - Thyroid neoplasm [Unknown]
  - Lymph node palpable [Unknown]
  - Mental status changes [Unknown]
  - Arteriosclerosis [Unknown]
  - Hepatic neoplasm [Unknown]
  - Amnesia [Unknown]
  - Fatigue [Unknown]
  - Ataxia [Unknown]
  - Musculoskeletal chest pain [Unknown]
  - Alveolitis [Unknown]
  - Oesophagitis [Unknown]
  - Restless legs syndrome [Unknown]
  - Neck mass [Unknown]
  - Dizziness [Unknown]
  - Inflammation [Unknown]
  - Pancreatic cyst [Unknown]
  - Sarcoidosis [Unknown]
  - Hypoaesthesia [Unknown]
  - Fibromyalgia [Unknown]
  - Arthralgia [Unknown]
  - Decreased appetite [Unknown]
  - Obstructive airways disorder [Unknown]
  - Insomnia [Unknown]
  - Pneumonia aspiration [Unknown]
  - Alopecia [Unknown]
  - Neuropathy peripheral [Recovering/Resolving]
  - Normochromic normocytic anaemia [Unknown]
  - Hyperkeratosis [Unknown]
  - Eczema [Unknown]
  - Depression [Unknown]
  - Ear pain [Unknown]
  - Ear haemorrhage [Unknown]
  - Osteomyelitis [Unknown]
  - Actinomycosis [Unknown]
  - Orthostatic hypotension [Unknown]
  - Folate deficiency [Unknown]
  - Nodule [Unknown]
  - Dental fistula [Unknown]
  - Cellulitis [Unknown]
  - Pneumonia [Unknown]
  - Angina pectoris [Unknown]
  - Left ventricular hypertrophy [Unknown]
  - Spinal column stenosis [Unknown]
  - Lumbar radiculopathy [Unknown]
  - Urinary tract infection [Unknown]
  - Pyrexia [Unknown]
  - Abdominal mass [Unknown]
  - Mass [Unknown]
  - Fat necrosis [Unknown]
  - Calcification metastatic [Unknown]
  - Pulmonary mass [Unknown]
  - Lacunar infarction [Unknown]
  - Perivascular dermatitis [Unknown]
  - Lymphoedema [Unknown]
  - Back pain [Not Recovered/Not Resolved]
  - Sciatica [Unknown]
  - Stress fracture [Unknown]
  - Cerebrovascular disorder [Unknown]
  - Oedema mouth [Unknown]
  - Gingivitis [Unknown]
  - Bone disorder [Unknown]
  - Synovitis [Unknown]
  - Fractured sacrum [Unknown]
  - Dystrophic calcification [Unknown]
  - Dysphagia [Unknown]
  - Sacroiliitis [Unknown]
  - Neuritis [Unknown]
  - Facet joint syndrome [Unknown]
  - Pulmonary fibrosis [Unknown]
  - Mitral valve incompetence [Unknown]
  - Tricuspid valve incompetence [Unknown]
  - Pulmonary valve incompetence [Unknown]
  - Muscle oedema [Unknown]
  - Spondylolisthesis [Unknown]
  - Vascular calcification [Unknown]
  - Phlebolith [Unknown]
  - Aortic calcification [Unknown]
  - Osteolysis [Unknown]
  - Osteosclerosis [Unknown]
  - Pathological fracture [Unknown]
  - Intervertebral disc protrusion [Unknown]
  - Bone marrow disorder [Unknown]
  - Bursitis [Unknown]
  - Localised oedema [Unknown]
  - Radiculitis [Unknown]
  - Urinary retention [Unknown]
  - Myalgia [Unknown]
  - Muscle spasms [Unknown]
  - Muscular weakness [Unknown]
  - Dislocation of vertebra [Unknown]
  - Fractured coccyx [Unknown]
  - Cerebrosclerosis [Unknown]
  - Dysgeusia [Unknown]
  - Facial pain [Unknown]
  - Joint instability [Unknown]
  - Osteopenia [Unknown]
  - Skin mass [Unknown]
  - Rib fracture [Unknown]
  - Cough [Unknown]
  - Gastrooesophageal reflux disease [Unknown]
  - Abdominal pain upper [Unknown]
  - Aspiration [Unknown]
  - Contusion [Unknown]
  - Haemorrhagic diathesis [Unknown]
  - Thrombosis [Unknown]
  - Anaemia [Unknown]
  - Hepatic cyst [Unknown]
  - Arthritis [Unknown]
  - Venous stenosis [Unknown]
  - Skin plaque [Unknown]
  - Neoplasm skin [Unknown]
  - Pain of skin [Unknown]
  - Constipation [Unknown]
  - Electrocardiogram ST-T segment abnormal [Unknown]
  - Myocardial ischaemia [Unknown]
